FAERS Safety Report 8180189-1 (Version None)
Quarter: 2012Q1

REPORT INFORMATION
  Report Type: 
  Country: None (occurrence: None)
  Receive Date: 20120302
  Receipt Date: 20120223
  Transmission Date: 20120608
  Serious: Yes (Other)
  Sender: FDA-Public Use
  Company Number: US-BAYER-2011-085630

PATIENT
  Age: 43 Year
  Sex: Female
  Weight: 84.354 kg

DRUGS (8)
  1. IMODIUM [Concomitant]
  2. SINGULAIR [Concomitant]
     Dosage: 10 MG, UNK
     Dates: start: 20090603
  3. ADVAIR DISKUS 100/50 [Concomitant]
     Indication: ASTHMA
  4. ZYRTEC [Concomitant]
     Dosage: 10 MG, UNK
  5. ALBUTEROL [Concomitant]
     Indication: ASTHMA
  6. YAZ [Suspect]
     Indication: PREMENSTRUAL SYNDROME
     Dosage: UNK
     Dates: start: 20080101, end: 20090501
  7. ACETAMINOPHEN [Concomitant]
     Indication: HEADACHE
  8. METAMUCIL-2 [Concomitant]
     Dosage: UNK
     Dates: start: 20090518

REACTIONS (9)
  - NEPHROLITHIASIS [None]
  - INJURY [None]
  - PAIN [None]
  - ANXIETY [None]
  - RENAL FAILURE [None]
  - GALLBLADDER DISORDER [None]
  - PSYCHOLOGICAL TRAUMA [None]
  - CHOLECYSTITIS CHRONIC [None]
  - EMOTIONAL DISTRESS [None]
